FAERS Safety Report 23481890 (Version 1)
Quarter: 2024Q1

REPORT INFORMATION
  Report Type: Spontaneous
  Country: US (occurrence: None)
  Receive Date: 20240205
  Receipt Date: 20240205
  Transmission Date: 20240409
  Serious: No
  Sender: FDA-Public Use
  Company Number: None

PATIENT
  Age: 65 Year
  Sex: Female

DRUGS (1)
  1. ENBREL [Suspect]
     Active Substance: ETANERCEPT
     Indication: Rheumatoid arthritis
     Dosage: FREQUENCY : WEEKLY;?
     Route: 058

REACTIONS (8)
  - Injection site erythema [None]
  - Injection site pruritus [None]
  - Fatigue [None]
  - Asthenia [None]
  - Tongue dry [None]
  - Dry mouth [None]
  - Diarrhoea [None]
  - Nasopharyngitis [None]
